FAERS Safety Report 17605736 (Version 1)
Quarter: 2020Q1

REPORT INFORMATION
  Report Type: Spontaneous
  Country: US (occurrence: US)
  Receive Date: 20200331
  Receipt Date: 20200331
  Transmission Date: 20200409
  Serious: Yes (Other)
  Sender: FDA-Public Use
  Company Number: NVSC2020US087847

PATIENT
  Age: 58 Year
  Sex: Male

DRUGS (2)
  1. PAZOPANIB [Suspect]
     Active Substance: PAZOPANIB
     Indication: EXTRASKELETAL MYXOID CHONDROSARCOMA
     Dosage: 600 MG, QD
     Route: 065
  2. PAZOPANIB [Suspect]
     Active Substance: PAZOPANIB
     Indication: CHEMOTHERAPY

REACTIONS (5)
  - Malignant neoplasm progression [Unknown]
  - Metastases to kidney [Unknown]
  - Inguinal mass [Unknown]
  - Metastases to lung [Unknown]
  - Extraskeletal myxoid chondrosarcoma [Unknown]
